FAERS Safety Report 7693278-2 (Version None)
Quarter: 2011Q3

REPORT INFORMATION
  Report Type: 
  Country: None (occurrence: None)
  Receive Date: 20110819
  Receipt Date: 20110808
  Transmission Date: 20111222
  Serious: Yes (Death, Hospitalization)
  Sender: FDA-Public Use
  Company Number: JP-SANOFI-AVENTIS-2011SA050707

PATIENT
  Age: 63 Year
  Sex: Male

DRUGS (10)
  1. RIFAMPICIN [Suspect]
     Dosage: DOSE WAS INCREASED GRADUALLY TO 450 MG
     Route: 065
     Dates: start: 20050101, end: 20050101
  2. RIFAMPICIN [Suspect]
     Route: 065
     Dates: end: 20050513
  3. ETHAMBUTOL HYDROCHLORIDE [Suspect]
     Route: 065
     Dates: start: 20050302, end: 20050519
  4. PYRAZINAMIDE [Suspect]
     Route: 065
     Dates: start: 20050306, end: 20050513
  5. RIFAMPICIN [Suspect]
     Route: 065
     Dates: start: 20050312
  6. PYRAZINAMIDE [Suspect]
     Indication: PULMONARY TUBERCULOSIS
     Route: 065
     Dates: start: 20050218
  7. ETHAMBUTOL HYDROCHLORIDE [Suspect]
     Indication: PULMONARY TUBERCULOSIS
     Route: 065
     Dates: start: 20050218
  8. RIFAMPICIN [Suspect]
     Indication: PULMONARY TUBERCULOSIS
     Route: 065
     Dates: start: 20050218
  9. ISONIAZID [Suspect]
     Indication: PULMONARY TUBERCULOSIS
     Route: 065
     Dates: start: 20050218
  10. ISONIAZID [Suspect]
     Route: 065
     Dates: end: 20050519

REACTIONS (10)
  - ABDOMINAL DISTENSION [None]
  - RASH [None]
  - HEPATIC ENZYME INCREASED [None]
  - FATIGUE [None]
  - JAUNDICE [None]
  - DECREASED APPETITE [None]
  - OEDEMA [None]
  - BLOOD BILIRUBIN INCREASED [None]
  - HEPATITIS FULMINANT [None]
  - GAIT DISTURBANCE [None]
